FAERS Safety Report 5035656-6 (Version None)
Quarter: 2006Q2

REPORT INFORMATION
  Report Type: 
  Country: None (occurrence: None)
  Receive Date: 20060627
  Receipt Date: 20060608
  Transmission Date: 20061013
  Serious: Yes (Hospitalization)
  Sender: FDA-Public Use
  Company Number: AU-SANOFI-SYNTHELABO-F01200601478

PATIENT
  Age: 59 Year
  Sex: Male
  Weight: 85.7 kg

DRUGS (16)
  1. LASIX [Concomitant]
     Route: 048
  2. ENDEP [Concomitant]
     Route: 048
  3. MICARDIS [Concomitant]
     Route: 048
  4. PREDNISONE TAB [Concomitant]
     Route: 048
  5. DILATREND [Concomitant]
     Route: 048
  6. LIPITOR [Concomitant]
     Route: 048
  7. COLOXYL + SENNA [Concomitant]
     Route: 048
  8. PLAVIX [Concomitant]
     Route: 048
  9. WARFARIN SODIUM [Concomitant]
     Route: 048
  10. SPIRACTIN [Concomitant]
     Route: 048
  11. ENDONE [Concomitant]
     Route: 048
  12. PARACETAMOL [Concomitant]
     Route: 048
  13. GEMCITABINE [Suspect]
     Route: 042
     Dates: start: 20060518, end: 20060518
  14. GEMCITABINE [Suspect]
     Route: 042
     Dates: start: 20060601, end: 20060601
  15. OXALIPLATIN [Suspect]
     Indication: PANCREATIC CARCINOMA
     Route: 042
     Dates: start: 20060519, end: 20060519
  16. OXALIPLATIN [Suspect]
     Route: 042
     Dates: start: 20060602, end: 20060602

REACTIONS (4)
  - CONSTIPATION [None]
  - PARAESTHESIA [None]
  - PERONEAL NERVE PALSY [None]
  - URINARY RETENTION [None]
